FAERS Safety Report 6647676-6 (Version None)
Quarter: 2010Q1

REPORT INFORMATION
  Report Type: 
  Country: None (occurrence: None)
  Receive Date: 20100323
  Receipt Date: 20100323
  Transmission Date: 20100710
  Serious: Yes (Hospitalization)
  Sender: FDA-Public Use
  Company Number: None

PATIENT
  Age: 58 Year
  Sex: Female
  Weight: 58.9676 kg

DRUGS (1)
  1. FOSAMAX [Suspect]
     Indication: MENOPAUSAL SYMPTOMS
     Dosage: 1 - TABLET WEEKLY
     Dates: start: 20030101, end: 20080101

REACTIONS (1)
  - FEMUR FRACTURE [None]
